FAERS Safety Report 5062129-7 (Version None)
Quarter: 2006Q3

REPORT INFORMATION
  Report Type: 
  Country: None (occurrence: None)
  Receive Date: 20060703
  Receipt Date: 20051011
  Transmission Date: 20061208
  Serious: No
  Sender: FDA-Public Use
  Company Number: 2005S1010048

PATIENT
  Age: 41 Year
  Sex: Male

DRUGS (6)
  1. CLOZAPINE [Suspect]
     Indication: SCHIZOAFFECTIVE DISORDER
     Dosage: 100 MG;QD;PO
     Route: 048
     Dates: start: 20050830, end: 20050916
  2. VALPROATE SODIUM [Concomitant]
  3. ZIPRASIDONE HCL [Concomitant]
  4. METFORMIN HYDROCHLORIDE [Concomitant]
  5. PROPRANOLOL [Concomitant]
  6. VITAMINS [Concomitant]

REACTIONS (1)
  - GRANULOCYTOPENIA [None]
